FAERS Safety Report 6928170-1 (Version None)
Quarter: 2010Q3

REPORT INFORMATION
  Report Type: 
  Country: None (occurrence: None)
  Receive Date: 20100817
  Receipt Date: 20100806
  Transmission Date: 20110219
  Serious: Yes (Death, Other)
  Sender: FDA-Public Use
  Company Number: US-BAXTER-2010BH021131

PATIENT
  Sex: Female

DRUGS (3)
  1. DIANEAL [Suspect]
     Indication: PERITONEAL DIALYSIS
     Route: 033
  2. DIANEAL [Suspect]
     Indication: PERITONEAL DIALYSIS
     Route: 033
  3. UNSPECIFIED ANESTHESIA [Suspect]
     Indication: DEBRIDEMENT
     Route: 065

REACTIONS (3)
  - BACTERIAL INFECTION [None]
  - CARDIAC ARREST [None]
  - CEREBRAL HAEMORRHAGE [None]
